FAERS Safety Report 4699329-1 (Version None)
Quarter: 2005Q2

REPORT INFORMATION
  Report Type: 
  Country: None (occurrence: None)
  Receive Date: 20050624
  Receipt Date: 20050615
  Transmission Date: 20051028
  Serious: Yes (Other)
  Sender: FDA-Public Use
  Company Number: GB-GLAXOSMITHKLINE-B0384603A

PATIENT
  Age: 37 Year
  Sex: Female

DRUGS (4)
  1. ZYBAN [Suspect]
     Indication: SMOKING CESSATION THERAPY
     Route: 048
     Dates: start: 20050504, end: 20050527
  2. CO-AMOXICLAV [Concomitant]
     Indication: LOWER RESPIRATORY TRACT INFECTION
     Route: 048
     Dates: start: 20050330, end: 20050401
  3. OMEPRAZOLE [Concomitant]
     Indication: GASTRITIS
     Dosage: 20MG PER DAY
     Route: 065
     Dates: start: 20050412, end: 20050501
  4. DICLOFENAC SODIUM [Concomitant]
     Indication: PAIN
     Dosage: 50MG PER DAY
     Route: 048
     Dates: end: 20050412

REACTIONS (1)
  - DERMATITIS BULLOUS [None]
